FAERS Safety Report 20531883 (Version 1)
Quarter: 2022Q1

REPORT INFORMATION
  Report Type: Spontaneous
  Country: US (occurrence: None)
  Receive Date: 20220228
  Receipt Date: 20220228
  Transmission Date: 20220423
  Serious: Yes (Other)
  Sender: FDA-Public Use
  Company Number: None

PATIENT
  Age: 51 Year
  Sex: Male

DRUGS (10)
  1. MYCOPHENOLIC ACID [Suspect]
     Active Substance: MYCOPHENOLIC ACID
     Dosage: OTHER QUANTITY : 3.75 ML AM/2.5 ML ;?
     Dates: start: 20211130, end: 20211214
  2. ELIQUIS [Suspect]
     Active Substance: APIXABAN
  3. AZITHROMYCIN [Concomitant]
  4. ITRACONAZOLE [Concomitant]
     Active Substance: ITRACONAZOLE
  5. OXYCODONE [Concomitant]
     Active Substance: OXYCODONE
  6. VALGANCICLOVIR [Concomitant]
  7. MIRTAZAPINE [Concomitant]
  8. MONTELUKAST [Concomitant]
  9. SULFAMETHOXAZOLE/TRIMETHOPRIM [Concomitant]
  10. ATORVASTATIN [Concomitant]

REACTIONS (1)
  - Hepatitis B [None]

NARRATIVE: CASE EVENT DATE: 20211214
